FAERS Safety Report 8965267 (Version 1)
Quarter: 2012Q4

REPORT INFORMATION
  Report Type: 
  Country: AT (occurrence: AT)
  Receive Date: 20121213
  Receipt Date: 20121213
  Transmission Date: 20130627
  Serious: Yes (Hospitalization, Other)
  Sender: FDA-Public Use
  Company Number: PHHO2012AT017795

PATIENT
  Age: 65 Year
  Sex: Male

DRUGS (8)
  1. SEDACORON [Suspect]
     Indication: ARRHYTHMIA PROPHYLAXIS
     Dosage: 400 mg, QD
     Route: 048
     Dates: start: 20111203
  2. SEDACORON [Suspect]
     Dosage: 200 mg, BID
     Route: 048
  3. SEDACORON [Suspect]
     Dosage: 200 mg, QD
     Route: 048
  4. ALISKIREN/ENALAPRIL [Suspect]
     Indication: CARDIAC FAILURE
     Route: 048
     Dates: start: 20110901
  5. TORASEMID [Concomitant]
     Indication: CARDIAC FAILURE
     Dosage: 20 mg, BID
     Route: 048
     Dates: start: 20111008
  6. SIMVASTATIN [Concomitant]
     Indication: HYPERCHOLESTEROLAEMIA
     Dosage: 20 mg, QD
     Route: 048
     Dates: start: 20110112
  7. BICALUTAMID [Concomitant]
     Indication: NEOPLASM PROSTATE
     Dosage: 50 mg, QD
     Route: 048
     Dates: start: 20061207
  8. UROSIN [Concomitant]
     Indication: HYPERURICAEMIA
     Dosage: 150 mg, QD
     Route: 048
     Dates: start: 20110527

REACTIONS (2)
  - Non-alcoholic steatohepatitis [Not Recovered/Not Resolved]
  - Overdose [Unknown]
